FAERS Safety Report 5293053-2 (Version None)
Quarter: 2007Q2

REPORT INFORMATION
  Report Type: 
  Country: None (occurrence: None)
  Receive Date: 20070411
  Receipt Date: 20070404
  Transmission Date: 20071010
  Serious: Yes (Life-Threatening, Hospitalization)
  Sender: FDA-Public Use
  Company Number: PHRM2007FR01195

PATIENT
  Age: 29 Year
  Sex: Male
  Weight: 66 kg

DRUGS (1)
  1. CLOZAPINE [Suspect]
     Indication: SCHIZOPHRENIA, PARANOID TYPE
     Dosage: 175 MG/DAY
     Route: 048
     Dates: start: 20070125, end: 20070202

REACTIONS (10)
  - CHOLESTASIS [None]
  - CYTOLYTIC HEPATITIS [None]
  - HEPATIC NECROSIS [None]
  - INTUBATION [None]
  - LEFT VENTRICULAR FAILURE [None]
  - LEUKOCYTOSIS [None]
  - LIFE SUPPORT [None]
  - NEUROLEPTIC MALIGNANT SYNDROME [None]
  - NEUTROPHILIA [None]
  - PYREXIA [None]
